FAERS Safety Report 9305832 (Version 1)
Quarter: 2013Q2

REPORT INFORMATION
  Report Type: Spontaneous
  Country: US (occurrence: None)
  Receive Date: 20130522
  Receipt Date: 20130522
  Transmission Date: 20140414
  Serious: No
  Sender: FDA-Public Use
  Company Number: None

PATIENT
  Sex: Male

DRUGS (2)
  1. AMBIEN [Suspect]
     Indication: INSOMNIA
  2. AMBIEN [Concomitant]

REACTIONS (3)
  - Abnormal dreams [None]
  - Gait disturbance [None]
  - Memory impairment [None]
